FAERS Safety Report 6997456-7 (Version None)
Quarter: 2010Q3

REPORT INFORMATION
  Report Type: 
  Country: None (occurrence: None)
  Receive Date: 20100918
  Receipt Date: 20091016
  Transmission Date: 20110219
  Serious: No
  Sender: FDA-Public Use
  Company Number: US-WYE-H11725309

PATIENT
  Sex: Female
  Weight: 104.42 kg

DRUGS (3)
  1. LYBREL [Suspect]
     Indication: CONTRACEPTION
     Route: 048
     Dates: start: 20080101
  2. MULTI-VITAMINS [Concomitant]
  3. METFORMIN [Concomitant]

REACTIONS (2)
  - INAPPROPRIATE SCHEDULE OF DRUG ADMINISTRATION [None]
  - METRORRHAGIA [None]
